FAERS Safety Report 6381633-2 (Version None)
Quarter: 2009Q3

REPORT INFORMATION
  Report Type: 
  Country: None (occurrence: None)
  Receive Date: 20090930
  Receipt Date: 20090917
  Transmission Date: 20100115
  Serious: Yes (Death)
  Sender: FDA-Public Use
  Company Number: US-BIOGENIDEC-2009BI029196

PATIENT
  Sex: Male

DRUGS (2)
  1. TYSABRI [Suspect]
     Indication: MULTIPLE SCLEROSIS
     Route: 042
     Dates: start: 20080417, end: 20080515
  2. TYSABRI [Suspect]
     Route: 042
     Dates: start: 20090528, end: 20090625

REACTIONS (2)
  - BIPOLAR DISORDER [None]
  - COMPLETED SUICIDE [None]
